FAERS Safety Report 13427777 (Version 1)
Quarter: 2017Q2

REPORT INFORMATION
  Report Type: Other
  Country: US (occurrence: US)
  Receive Date: 20170411
  Receipt Date: 20170411
  Transmission Date: 20170830
  Serious: Yes (Death, Other)
  Sender: FDA-Public Use
  Company Number: US-B. BRAUN MEDICAL INC.-1065275

PATIENT
  Age: 2 Week
  Sex: Female
  Weight: 4.1 kg

DRUGS (14)
  1. GLUCAGON. [Suspect]
     Active Substance: GLUCAGON
     Route: 041
  2. DEXTROSE INJECTIONS USP 0264-7510-00 0264-7510-20 [Suspect]
     Active Substance: DEXTROSE
     Indication: HYPERINSULINISM
     Route: 042
  3. SANDOSTATIN [Concomitant]
     Active Substance: OCTREOTIDE ACETATE
     Route: 058
  4. VANCOMYCIN HCL [Concomitant]
     Active Substance: VANCOMYCIN HYDROCHLORIDE
  5. CISATRACURIUM. [Concomitant]
     Active Substance: CISATRACURIUM
  6. DIAZOXIDE [Concomitant]
     Active Substance: DIAZOXIDE
  7. DOPAMINE [Concomitant]
     Active Substance: DOPAMINE\DOPAMINE HYDROCHLORIDE
  8. GENTAMICIN. [Concomitant]
     Active Substance: GENTAMICIN
  9. ATROPINE. [Concomitant]
     Active Substance: ATROPINE
  10. FENTANYL. [Concomitant]
     Active Substance: FENTANYL
  11. CALCIUM GLUCONATE. [Concomitant]
     Active Substance: CALCIUM GLUCONATE
  12. POTASSIUM CHLORIDE. [Concomitant]
     Active Substance: POTASSIUM CHLORIDE
  13. FUROSEMIDE. [Concomitant]
     Active Substance: FUROSEMIDE
  14. SODIUM BICARBONATE. [Concomitant]
     Active Substance: SODIUM BICARBONATE

REACTIONS (1)
  - Hyperglycaemia [Unknown]
